FAERS Safety Report 5276483-4 (Version None)
Quarter: 2007Q1

REPORT INFORMATION
  Report Type: 
  Country: None (occurrence: None)
  Receive Date: 20061214
  Receipt Date: 20060717
  Transmission Date: 20070707
  Serious: Yes (Hospitalization)
  Sender: FDA-Public Use
  Company Number: 2006091195

PATIENT
  Age: 59 Year
  Sex: Male
  Weight: 120.2032 kg

DRUGS (1)
  1. BEXTRA [Suspect]
     Indication: ARTHRITIS
     Dosage: 20 TO 40 MG (20 MG)
     Dates: start: 20020501, end: 20050101

REACTIONS (1)
  - MYOCARDIAL INFARCTION [None]
